FAERS Safety Report 5010409-3 (Version None)
Quarter: 2006Q2

REPORT INFORMATION
  Report Type: 
  Country: None (occurrence: None)
  Receive Date: 20060404
  Receipt Date: 20051227
  Transmission Date: 20061013
  Serious: No
  Sender: FDA-Public Use
  Company Number: US200512004219

PATIENT
  Sex: Female

DRUGS (8)
  1. CYMBALTA [Suspect]
     Indication: DEPRESSION
     Dosage: 30 MG
     Dates: start: 20051215
  2. PROZAC [Suspect]
     Indication: DEPRESSION
     Dosage: 20 MG, 2/D
  3. LIPITOR [Concomitant]
  4. DIOVAN [Concomitant]
  5. SYNTHROID [Concomitant]
  6. CYTOMEL [Concomitant]
  7. FIORINAL (ACETYLSALICYLIC ACID) [Concomitant]
  8. TOPROL-XL [Concomitant]

REACTIONS (2)
  - DRUG INEFFECTIVE [None]
  - DRY MOUTH [None]
